FAERS Safety Report 6014589-2 (Version None)
Quarter: 2008Q4

REPORT INFORMATION
  Report Type: 
  Country: None (occurrence: None)
  Receive Date: 20081219
  Receipt Date: 20081021
  Transmission Date: 20090506
  Serious: No
  Sender: FDA-Public Use
  Company Number: A0746115A

PATIENT
  Age: 88 Year
  Sex: Male

DRUGS (4)
  1. AVODART [Suspect]
     Indication: PROSTATIC DISORDER
     Dosage: 1CAP PER DAY
     Route: 048
  2. FLOMAX [Concomitant]
  3. ALLOPURINOL [Concomitant]
  4. COLD MEDICINE [Concomitant]

REACTIONS (3)
  - DRUG ADMINISTRATION ERROR [None]
  - MEDICATION RESIDUE [None]
  - THROAT IRRITATION [None]
